FAERS Safety Report 5884379-X (Version None)
Quarter: 2008Q3

REPORT INFORMATION
  Report Type: 
  Country: None (occurrence: None)
  Receive Date: 20080915
  Receipt Date: 20080903
  Transmission Date: 20090109
  Serious: Yes (Disabling)
  Sender: FDA-Public Use
  Company Number: DE-PFIZER INC-2008064909

PATIENT
  Sex: Female
  Weight: 61 kg

DRUGS (4)
  1. LYRICA [Suspect]
     Indication: FIBROMYALGIA
     Route: 048
     Dates: start: 20080721, end: 20080828
  2. LYRICA [Suspect]
     Indication: CHEST PAIN
  3. PHLOGENZYM [Concomitant]
     Indication: SJOGREN'S SYNDROME
     Route: 048
  4. ACETAMINOPHEN [Concomitant]

REACTIONS (6)
  - CHEST PAIN [None]
  - DYSPHAGIA [None]
  - HYPOAESTHESIA [None]
  - MUSCULOSKELETAL STIFFNESS [None]
  - PARAESTHESIA [None]
  - SJOGREN'S SYNDROME [None]
